FAERS Safety Report 9113598 (Version 1)
Quarter: 2013Q1

REPORT INFORMATION
  Report Type: Spontaneous
  Country: US (occurrence: US)
  Receive Date: 20130129
  Receipt Date: 20130129
  Transmission Date: 20140127
  Serious: No
  Sender: FDA-Public Use
  Company Number: US-VERTEX PHARMACEUTICALS INC.-2013-001257

PATIENT
  Age: 62 Year
  Sex: Female
  Weight: 77 kg

DRUGS (5)
  1. INCIVEK [Suspect]
     Indication: HEPATITIS C
     Dosage: 750 MG, TID
     Route: 048
     Dates: start: 20121108
  2. RIBASPHERE [Suspect]
     Indication: HEPATITIS C
     Dosage: 3 PILLS AM, 2 PILLS PM
     Route: 048
     Dates: start: 20121108, end: 201301
  3. RIBASPHERE [Suspect]
     Dosage: UNK
     Route: 048
     Dates: start: 201301, end: 20130126
  4. RIBASPHERE [Suspect]
     Dosage: 1 DF, QD
     Route: 048
     Dates: start: 20130126
  5. PEGASYS [Suspect]
     Indication: HEPATITIS C
     Dosage: QW
     Route: 058
     Dates: start: 20121108

REACTIONS (3)
  - Skin discolouration [Not Recovered/Not Resolved]
  - Anaemia [Not Recovered/Not Resolved]
  - Pruritus [Not Recovered/Not Resolved]
